FAERS Safety Report 7378291-7 (Version None)
Quarter: 2011Q1

REPORT INFORMATION
  Report Type: 
  Country: None (occurrence: None)
  Receive Date: 20110328
  Receipt Date: 20110318
  Transmission Date: 20110831
  Serious: Yes (Other)
  Sender: FDA-Public Use
  Company Number: US-ROCHE-647211

PATIENT
  Age: 87 Year
  Sex: Male

DRUGS (9)
  1. COUMADIN [Concomitant]
  2. PRAVACHOL [Concomitant]
  3. CALCIUM CARBONATE [Concomitant]
  4. POTASSIUM CHLORIDE [Concomitant]
  5. TOPROL-XL [Concomitant]
  6. HYGROTON [Concomitant]
  7. HYTRIN [Concomitant]
  8. BONIVA [Suspect]
     Indication: OSTEOPENIA
     Route: 048
     Dates: start: 20061009
  9. PRILOSEC [Suspect]
     Route: 065

REACTIONS (5)
  - ROTATOR CUFF SYNDROME [None]
  - DRUG INEFFECTIVE [None]
  - FALL [None]
  - OSTEOPOROSIS [None]
  - BONE DENSITY DECREASED [None]
